FAERS Safety Report 5002031-X (Version None)
Quarter: 2006Q2

REPORT INFORMATION
  Report Type: 
  Country: None (occurrence: None)
  Receive Date: 20060515
  Receipt Date: 20060502
  Transmission Date: 20061013
  Serious: Yes (Hospitalization)
  Sender: FDA-Public Use
  Company Number: CA-BRISTOL-MYERS SQUIBB COMPANY-13372883

PATIENT
  Age: 75 Year
  Sex: Female

DRUGS (7)
  1. CYCLOPHOSPHAMIDE [Suspect]
     Route: 042
     Dates: start: 20051004, end: 20051201
  2. FLUDARABINE [Suspect]
     Route: 042
     Dates: start: 20051004, end: 20051201
  3. ACYCLOVIR [Concomitant]
     Dates: start: 20051004
  4. QUINAPRIL HCL [Concomitant]
  5. CIPRO [Concomitant]
     Dates: start: 20060130, end: 20060131
  6. CLAVULIN [Concomitant]
     Dates: start: 20060130, end: 20060131
  7. CEFTRIAXONE [Concomitant]
     Dates: start: 20060128, end: 20060130

REACTIONS (5)
  - ANAEMIA HAEMOLYTIC AUTOIMMUNE [None]
  - COUGH [None]
  - HAEMOLYTIC ANAEMIA [None]
  - HERPES ZOSTER [None]
  - NEUTROPENIA [None]
